FAERS Safety Report 12632163 (Version 2)
Quarter: 2016Q3

REPORT INFORMATION
  Report Type: Spontaneous
  Country: US (occurrence: US)
  Receive Date: 20160808
  Receipt Date: 20160808
  Transmission Date: 20161109
  Serious: No
  Sender: FDA-Public Use
  Company Number: US-BEH-2016062061

PATIENT
  Sex: Female
  Weight: 48 kg

DRUGS (21)
  1. PREDISONE [Concomitant]
     Active Substance: PREDNISONE
  2. LIDOCAINE. [Concomitant]
     Active Substance: LIDOCAINE
  3. TYLENOL [Concomitant]
     Active Substance: ACETAMINOPHEN
  4. PREMARIN [Concomitant]
     Active Substance: ESTROGENS, CONJUGATED
  5. SPIRIVA [Concomitant]
     Active Substance: TIOTROPIUM BROMIDE MONOHYDRATE
  6. VITAMIN D [Concomitant]
     Active Substance: CHOLECALCIFEROL
  7. XOPENEX [Concomitant]
     Active Substance: LEVALBUTEROL HYDROCHLORIDE
  8. LEVAQUIN [Concomitant]
     Active Substance: LEVOFLOXACIN
  9. ASPIRIN. [Concomitant]
     Active Substance: ASPIRIN
  10. CALCIUM [Concomitant]
     Active Substance: CALCIUM
  11. CENTRUM SILVER [Concomitant]
     Active Substance: MINERALS\VITAMINS
  12. GABAPENTIN. [Concomitant]
     Active Substance: GABAPENTIN
  13. DIPHENHYDRAMINE. [Concomitant]
     Active Substance: DIPHENHYDRAMINE
  14. ACTONEL [Concomitant]
     Active Substance: RISEDRONATE SODIUM
  15. FISH OIL [Concomitant]
     Active Substance: FISH OIL
  16. SINGULAIR [Concomitant]
     Active Substance: MONTELUKAST SODIUM
  17. HIZENTRA [Suspect]
     Active Substance: HUMAN IMMUNOGLOBULIN G
     Indication: IMMUNODEFICIENCY COMMON VARIABLE
     Route: 058
     Dates: start: 20140210
  18. EPIPEN [Concomitant]
     Active Substance: EPINEPHRINE
  19. IBUPROFEN. [Concomitant]
     Active Substance: IBUPROFEN
  20. CIPRO [Concomitant]
     Active Substance: CIPROFLOXACIN HYDROCHLORIDE
  21. ADVAIR HFA [Concomitant]
     Active Substance: FLUTICASONE PROPIONATE\SALMETEROL XINAFOATE

REACTIONS (1)
  - Swelling [Unknown]
